FAERS Safety Report 8873734 (Version 1)
Quarter: 2012Q4

REPORT INFORMATION
  Report Type: 
  Country: US (occurrence: US)
  Receive Date: 20121026
  Receipt Date: 20121026
  Transmission Date: 20130627
  Serious: No
  Sender: FDA-Public Use
  Company Number: US-AMGEN-USASP2012045986

PATIENT
  Sex: Female

DRUGS (6)
  1. ENBREL [Suspect]
     Indication: PRODUCT USED FOR UNKNOWN INDICATION
     Dosage: 25 mg, 2 times/wk
     Route: 058
  2. EFFEXOR [Concomitant]
     Dosage: 25 mg, UNK
  3. PRILOSEC                           /00661201/ [Concomitant]
     Dosage: 10 mg, UNK
  4. SOMA [Concomitant]
     Dosage: 250 mg, UNK
  5. VICODIN ES [Concomitant]
     Dosage: 7.5-750
  6. PRISTIQ [Concomitant]
     Dosage: 50 mg, UNK

REACTIONS (1)
  - Pneumonia [Recovered/Resolved]
